FAERS Safety Report 12308456 (Version 1)
Quarter: 2016Q2

REPORT INFORMATION
  Report Type: Spontaneous
  Country: CA (occurrence: CA)
  Receive Date: 20160427
  Receipt Date: 20160427
  Transmission Date: 20160815
  Serious: Yes (Death)
  Sender: FDA-Public Use
  Company Number: CA-ROCHE-1747534

PATIENT

DRUGS (8)
  1. TEGRETOL [Concomitant]
     Active Substance: CARBAMAZEPINE
     Indication: BIPOLAR DISORDER
     Route: 065
  2. PEGASYS [Suspect]
     Active Substance: PEGINTERFERON ALFA-2A
     Indication: HEPATITIS C
     Route: 058
  3. RIBAVIRIN. [Suspect]
     Active Substance: RIBAVIRIN
     Indication: HEPATITIS C
     Route: 048
  4. RIBAVIRIN. [Suspect]
     Active Substance: RIBAVIRIN
     Dosage: THERAPY DURATION: 140.0 DAY(S)
     Route: 048
  5. RIBAVIRIN. [Suspect]
     Active Substance: RIBAVIRIN
     Route: 048
  6. VICTRELIS [Suspect]
     Active Substance: BOCEPREVIR
     Indication: HEPATITIS C
     Route: 048
  7. VALPROIC ACID. [Concomitant]
     Active Substance: VALPROIC ACID
     Indication: SEIZURE
     Route: 048
  8. TEGRETOL [Concomitant]
     Active Substance: CARBAMAZEPINE
     Indication: SEIZURE
     Route: 048

REACTIONS (13)
  - White blood cell count decreased [Fatal]
  - Nausea [Fatal]
  - Neutrophil count decreased [Fatal]
  - Aspartate aminotransferase increased [Fatal]
  - Red blood cell count decreased [Fatal]
  - Haemoglobin decreased [Fatal]
  - Platelet count decreased [Fatal]
  - Death [Fatal]
  - Feeling abnormal [Fatal]
  - Haematocrit decreased [Fatal]
  - Alanine aminotransferase increased [Fatal]
  - Blood bilirubin increased [Fatal]
  - Blood glucose increased [Fatal]
